FAERS Safety Report 6370693-0 (Version None)
Quarter: 2009Q3

REPORT INFORMATION
  Report Type: 
  Country: None (occurrence: None)
  Receive Date: 20090923
  Receipt Date: 20070507
  Transmission Date: 20100115
  Serious: Yes (Hospitalization)
  Sender: FDA-Public Use
  Company Number: US-ASTRAZENECA-2006UW27484

PATIENT
  Age: 57 Year
  Sex: Female
  Weight: 68 kg

DRUGS (16)
  1. SEROQUEL [Suspect]
     Indication: DEPRESSION
     Route: 048
     Dates: start: 20000401, end: 20070501
  2. SEROQUEL [Suspect]
     Indication: INSOMNIA
     Route: 048
     Dates: start: 20000401, end: 20070501
  3. SEROQUEL [Suspect]
     Route: 048
     Dates: start: 20011106
  4. SEROQUEL [Suspect]
     Route: 048
     Dates: start: 20011106
  5. NAVANE [Concomitant]
  6. PAXIL [Concomitant]
     Dosage: 40-60 MG DAILY
     Dates: start: 20001222
  7. PAXIL [Concomitant]
     Route: 048
     Dates: start: 20061004
  8. LOPID [Concomitant]
     Route: 048
  9. RESTORIL [Concomitant]
     Dosage: 15-60 MG DAILY
     Dates: start: 20001222
  10. PRILOSEC [Concomitant]
     Dates: start: 20020118
  11. PREDNISONE [Concomitant]
     Dates: start: 20020322
  12. XANAX [Concomitant]
     Dates: start: 20011106
  13. IMITREX [Concomitant]
     Dates: start: 20001222
  14. CELEBREX [Concomitant]
     Dates: start: 20001222
  15. CELESTONE [Concomitant]
     Dates: start: 20010410
  16. SOLU-MEDROL DOSEPAK [Concomitant]
     Dates: start: 20010410

REACTIONS (6)
  - BLOOD CHOLESTEROL INCREASED [None]
  - CEREBROVASCULAR ACCIDENT [None]
  - DIABETES MELLITUS [None]
  - FACIAL PALSY [None]
  - OBESITY [None]
  - VISUAL ACUITY REDUCED [None]
